FAERS Safety Report 8591388-9 (Version None)
Quarter: 2012Q3

REPORT INFORMATION
  Report Type: 
  Country: None (occurrence: None)
  Receive Date: 20120803
  Receipt Date: 20120803
  Transmission Date: 20120928
  Serious: Yes (Life-Threatening, Other)
  Sender: FDA-Public Use
  Company Number: None

PATIENT
  Age: 40 Year
  Sex: Female
  Weight: 58.0604 kg

DRUGS (2)
  1. SEROQUEL XR [Suspect]
     Indication: BIPOLAR DISORDER
     Dosage: 50 MG 2 A DAY AT BEDTIME PO
     Route: 048
     Dates: start: 20120423, end: 20120731
  2. SEROQUEL XR [Suspect]
     Indication: PSYCHOTIC DISORDER
     Dosage: 50 MG 2 A DAY AT BEDTIME PO
     Route: 048
     Dates: start: 20120423, end: 20120731

REACTIONS (9)
  - FATIGUE [None]
  - GAIT DISTURBANCE [None]
  - HYPERSOMNIA [None]
  - ANXIETY [None]
  - FEAR [None]
  - MOVEMENT DISORDER [None]
  - DYSPNOEA [None]
  - HEART RATE INCREASED [None]
  - DIZZINESS [None]
